FAERS Safety Report 14097879 (Version 2)
Quarter: 2017Q4

REPORT INFORMATION
  Report Type: Spontaneous
  Country: FR (occurrence: FR)
  Receive Date: 20171017
  Receipt Date: 20171023
  Transmission Date: 20180321
  Serious: Yes (Other)
  Sender: FDA-Public Use
  Company Number: FR-ASTELLAS-2017US041382

PATIENT
  Sex: Male

DRUGS (1)
  1. XTANDI [Suspect]
     Active Substance: ENZALUTAMIDE
     Indication: PROSTATE CANCER
     Dosage: UNK UNK, UNKNOWN FREQ.
     Route: 065
     Dates: end: 2017

REACTIONS (4)
  - Nasal sinus cancer [Unknown]
  - Circumstance or information capable of leading to medication error [Unknown]
  - Prostatic specific antigen increased [Unknown]
  - Product use complaint [Unknown]
